FAERS Safety Report 7541685-0 (Version None)
Quarter: 2011Q2

REPORT INFORMATION
  Report Type: 
  Country: None (occurrence: None)
  Receive Date: 20110602
  Receipt Date: 20110519
  Transmission Date: 20111010
  Serious: Yes (Hospitalization)
  Sender: FDA-Public Use
  Company Number: 2011028638

PATIENT
  Age: 72 Year
  Sex: Male

DRUGS (6)
  1. PRIVIGEN [Suspect]
  2. FUROSEMIDE [Concomitant]
  3. RAMIPRIL [Concomitant]
  4. PRIVIGEN [Suspect]
     Indication: CHRONIC LYMPHOCYTIC LEUKAEMIA
     Dosage: 10 G QD, 10 G QD
     Route: 042
     Dates: start: 20101025, end: 20101025
  5. PRIVIGEN [Suspect]
     Indication: SECONDARY IMMUNODEFICIENCY
     Dosage: 10 G QD, 10 G QD
     Route: 042
     Dates: start: 20101025, end: 20101025
  6. ASPIRIN [Concomitant]

REACTIONS (7)
  - PAPILLOMA [None]
  - CAROTID ARTERY STENOSIS [None]
  - HYPOAESTHESIA FACIAL [None]
  - CHEST DISCOMFORT [None]
  - SINUSITIS [None]
  - LUNG INFECTION [None]
  - SINUS DISORDER [None]
